FAERS Safety Report 8155421-0 (Version None)
Quarter: 2012Q1

REPORT INFORMATION
  Report Type: 
  Country: None (occurrence: None)
  Receive Date: 20120215
  Receipt Date: 20110817
  Transmission Date: 20120608
  Serious: No
  Sender: FDA-Public Use
  Company Number: MX-IGSA-GBI907

PATIENT
  Age: 51 Year
  Sex: Female
  Weight: 65 kg

DRUGS (6)
  1. ALBUTEIN [Suspect]
     Indication: COLECTOMY
     Dosage: 50 ML ONCE IV
     Route: 042
     Dates: start: 20110722
  2. ALBUTEIN [Suspect]
     Indication: POSTOPERATIVE CARE
     Dosage: 50 ML ONCE IV
     Route: 042
     Dates: start: 20110722
  3. CLAFORAN [Concomitant]
  4. PANTOPRAZOLE [Concomitant]
  5. DYNASTAT [Concomitant]
  6. LASIX [Concomitant]

REACTIONS (2)
  - TACHYCARDIA [None]
  - RASH [None]
